FAERS Safety Report 16783040 (Version 3)
Quarter: 2019Q4

REPORT INFORMATION
  Report Type: Report from Study
  Country: NL (occurrence: NL)
  Receive Date: 20190906
  Receipt Date: 20191001
  Transmission Date: 20200122
  Serious: Yes (Hospitalization)
  Sender: FDA-Public Use
  Company Number: PHHO2019NL008033

PATIENT
  Age: 73 Year
  Sex: Female
  Weight: 108 kg

DRUGS (3)
  1. METFORMINE [Concomitant]
     Active Substance: METFORMIN HYDROCHLORIDE
     Indication: HYPERGLYCAEMIA
     Dosage: 500 MG, BID
     Route: 048
     Dates: start: 20190409, end: 20190803
  2. BYL719 [Suspect]
     Active Substance: ALPELISIB
     Indication: BREAST CANCER
     Dosage: 250 MG, QD
     Route: 048
     Dates: start: 20190329
  3. GLICLAZIDE [Concomitant]
     Active Substance: GLICLAZIDE
     Indication: HYPERGLYCAEMIA
     Dosage: 30 MG, QD
     Route: 048
     Dates: start: 20190507, end: 20190803

REACTIONS (5)
  - Blood creatine phosphokinase increased [Recovered/Resolved]
  - Skin ulcer [Recovered/Resolved]
  - Acute kidney injury [Recovered/Resolved]
  - Sepsis [Recovered/Resolved]
  - Monoparesis [Recovering/Resolving]

NARRATIVE: CASE EVENT DATE: 20190803
